FAERS Safety Report 16064863 (Version 1)
Quarter: 2019Q1

REPORT INFORMATION
  Report Type: Report from Study
  Country: None (occurrence: US)
  Receive Date: 20190312
  Receipt Date: 20190312
  Transmission Date: 20190418
  Serious: Yes (Hospitalization, Other)
  Sender: FDA-Public Use
  Company Number: US-ABBVIE-19K-163-2698446-00

PATIENT
  Age: 59 Year
  Sex: Female

DRUGS (1)
  1. HUMIRA [Suspect]
     Active Substance: ADALIMUMAB
     Indication: RHEUMATOID ARTHRITIS
     Route: 058

REACTIONS (8)
  - Ligament sprain [Unknown]
  - Neoplasm malignant [Recovered/Resolved]
  - Musculoskeletal disorder [Recovering/Resolving]
  - Gait disturbance [Recovering/Resolving]
  - Contusion [Unknown]
  - Facial bones fracture [Unknown]
  - Fall [Recovering/Resolving]
  - Cerebral haemorrhage [Unknown]

NARRATIVE: CASE EVENT DATE: 2004
